FAERS Safety Report 5583937-X (Version None)
Quarter: 2008Q1

REPORT INFORMATION
  Report Type: 
  Country: None (occurrence: None)
  Receive Date: 20080108
  Receipt Date: 20080103
  Transmission Date: 20080703
  Serious: Yes (Hospitalization, Disabling)
  Sender: FDA-Public Use
  Company Number: US-ELI_LILLY_AND_COMPANY-US200801000439

PATIENT
  Sex: Male

DRUGS (3)
  1. ZYPREXA [Suspect]
     Dosage: UNK, UNK
  2. LITHIUM [Concomitant]
  3. KLONOPIN [Concomitant]

REACTIONS (13)
  - ABASIA [None]
  - ASTHENIA [None]
  - CEREBRAL ATAXIA [None]
  - DYSARTHRIA [None]
  - FALL [None]
  - HYPERPYREXIA [None]
  - MALAISE [None]
  - MOVEMENT DISORDER [None]
  - MUSCLE RIGIDITY [None]
  - NAUSEA [None]
  - NEUROLEPTIC MALIGNANT SYNDROME [None]
  - PNEUMONIA [None]
  - VOMITING [None]
